FAERS Safety Report 4486064-8 (Version None)
Quarter: 2004Q4

REPORT INFORMATION
  Report Type: 
  Country: None (occurrence: None)
  Receive Date: 20041021
  Receipt Date: 20041008
  Transmission Date: 20050328
  Serious: Yes (Death, Life-Threatening, Other)
  Sender: FDA-Public Use
  Company Number: 2004060682

PATIENT
  Age: 19 Year
  Sex: Male

DRUGS (1)
  1. NIFEDIPINE [Suspect]
     Indication: ILL-DEFINED DISORDER
     Dosage: 60 MG (5 MG, 1 IN1 D), INTRAVENOUS
     Route: 042
     Dates: start: 19901028, end: 19901028

REACTIONS (15)
  - CIRCULATORY COLLAPSE [None]
  - DRUG ABUSER [None]
  - DYSPNOEA [None]
  - EXCORIATION [None]
  - GASTROINTESTINAL MUCOSAL DISORDER [None]
  - GENERAL PHYSICAL HEALTH DETERIORATION [None]
  - HYPERAEMIA [None]
  - LOSS OF CONSCIOUSNESS [None]
  - MEDICATION ERROR [None]
  - MUCOSAL HAEMORRHAGE [None]
  - OVERDOSE [None]
  - PULMONARY CONGESTION [None]
  - PULMONARY OEDEMA [None]
  - SKIN DISCOLOURATION [None]
  - SYNCOPE [None]
